FAERS Safety Report 11573539 (Version 1)
Quarter: 2015Q3

REPORT INFORMATION
  Report Type: Spontaneous
  Country: US (occurrence: US)
  Receive Date: 20150916
  Receipt Date: 20150916
  Transmission Date: 20151125
  Serious: No
  Sender: FDA-Public Use
  Company Number: US-ELI_LILLY_AND_COMPANY-US200911001217

PATIENT
  Sex: Female

DRUGS (2)
  1. FORTEO [Interacting]
     Active Substance: TERIPARATIDE
     Dosage: 20 UG, DAILY (1/D)
     Dates: start: 2009
  2. FORTEO [Suspect]
     Active Substance: TERIPARATIDE
     Dosage: 20 UG, DAILY (1/D)
     Dates: start: 2009, end: 2009

REACTIONS (5)
  - Trichorrhexis [Not Recovered/Not Resolved]
  - Chills [Recovered/Resolved]
  - Chills [Not Recovered/Not Resolved]
  - Drug dose omission [Recovered/Resolved]
  - Drug interaction [Unknown]

NARRATIVE: CASE EVENT DATE: 2009
